FAERS Safety Report 10535480 (Version 5)
Quarter: 2015Q1

REPORT INFORMATION
  Report Type: Report from Study
  Country: US (occurrence: US)
  Receive Date: 20141022
  Receipt Date: 20150211
  Transmission Date: 20150720
  Serious: Yes (Other)
  Sender: FDA-Public Use
  Company Number: US-BAYER-2014-142792

PATIENT
  Age: 58 Year
  Sex: Female

DRUGS (2)
  1. STIVARGA [Suspect]
     Active Substance: REGORAFENIB
     Indication: COLORECTAL CANCER METASTATIC
     Dosage: 120 MG, DAILY
     Route: 048
     Dates: start: 20141016, end: 20150130
  2. STIVARGA [Suspect]
     Active Substance: REGORAFENIB
     Indication: COLORECTAL CANCER METASTATIC
     Dosage: 160 MG, QD
     Route: 048
     Dates: start: 20140911, end: 20140928

REACTIONS (15)
  - Impaired healing [Recovered/Resolved]
  - Rash [None]
  - Muscle spasms [Recovered/Resolved]
  - Stomatitis [None]
  - Pruritus generalised [Recovered/Resolved]
  - Dysphonia [Not Recovered/Not Resolved]
  - Pain in extremity [None]
  - Rash generalised [Recovered/Resolved]
  - Diarrhoea [None]
  - Skin hypertrophy [Not Recovered/Not Resolved]
  - Colorectal cancer metastatic [None]
  - Deafness bilateral [Recovering/Resolving]
  - Weight increased [None]
  - Back pain [Recovered/Resolved]
  - Pain in extremity [Recovering/Resolving]

NARRATIVE: CASE EVENT DATE: 2014
